FAERS Safety Report 11498286 (Version 1)
Quarter: 2015Q3

REPORT INFORMATION
  Report Type: Spontaneous
  Country: US (occurrence: US)
  Receive Date: 20150911
  Receipt Date: 20150911
  Transmission Date: 20151125
  Serious: Yes (Other)
  Sender: FDA-Public Use
  Company Number: US-ASTRAZENECA-2015SE86173

PATIENT
  Age: 64 Year
  Sex: Female

DRUGS (1)
  1. PULMICORT UNSPECIFIED [Suspect]
     Active Substance: BUDESONIDE
     Route: 055

REACTIONS (10)
  - Pertussis [Unknown]
  - Peroneal nerve palsy [Unknown]
  - Dyspnoea [Unknown]
  - Sleep apnoea syndrome [Unknown]
  - Dental caries [Unknown]
  - H1N1 influenza [Unknown]
  - Asthma [Unknown]
  - Pleurisy [Unknown]
  - Multiple sclerosis [Unknown]
  - Expired product administered [Unknown]

NARRATIVE: CASE EVENT DATE: 2012
